FAERS Safety Report 6719164-X (Version None)
Quarter: 2010Q2

REPORT INFORMATION
  Report Type: 
  Country: None (occurrence: None)
  Receive Date: 20100507
  Receipt Date: 20100503
  Transmission Date: 20101027
  Serious: Yes (Other)
  Sender: FDA-Public Use
  Company Number: 2010SP025236

PATIENT
  Age: 6 Year
  Sex: Male

DRUGS (1)
  1. CHILDREN'S CLARITIN [Suspect]
     Dosage: PO
     Route: 048

REACTIONS (2)
  - CONVULSION [None]
  - VOMITING [None]
